FAERS Safety Report 19850510 (Version 1)
Quarter: 2021Q3

REPORT INFORMATION
  Report Type: Report from Study
  Country: JP (occurrence: JP)
  Receive Date: 20210918
  Receipt Date: 20210918
  Transmission Date: 20211014
  Serious: Yes (Death, Other)
  Sender: FDA-Public Use
  Company Number: JP-TAKEDA-2021TUS058149

PATIENT
  Age: 66 Year
  Sex: Female
  Weight: 58.4 kg

DRUGS (3)
  1. BAYASPIRIN [Concomitant]
     Active Substance: ASPIRIN
     Indication: PROPHYLAXIS
     Dosage: UNK
     Route: 065
     Dates: start: 20170515, end: 20170802
  2. PONATINIB [Suspect]
     Active Substance: PONATINIB
     Indication: ACUTE LYMPHOCYTIC LEUKAEMIA
     Dosage: 45 MILLIGRAM, QD
     Route: 048
     Dates: start: 20170515, end: 20170802
  3. PONATINIB [Suspect]
     Active Substance: PONATINIB
     Indication: PHILADELPHIA POSITIVE ACUTE LYMPHOCYTIC LEUKAEMIA

REACTIONS (6)
  - Skin exfoliation [Recovering/Resolving]
  - Drug ineffective [Unknown]
  - Philadelphia positive acute lymphocytic leukaemia [Fatal]
  - Hypertension [Recovering/Resolving]
  - Papule [Recovering/Resolving]
  - Headache [Recovering/Resolving]

NARRATIVE: CASE EVENT DATE: 20170516
